FAERS Safety Report 11562050 (Version 6)
Quarter: 2016Q2

REPORT INFORMATION
  Report Type: Report from Study
  Country: US (occurrence: US)
  Receive Date: 20150928
  Receipt Date: 20160519
  Transmission Date: 20160815
  Serious: Yes (Hospitalization, Other)
  Sender: FDA-Public Use
  Company Number: US-BAXTER-2015BAX051580

PATIENT
  Age: 75 Year
  Sex: Male

DRUGS (74)
  1. 0.9% SODIUM CHLORIDE INJECTION [Suspect]
     Active Substance: SODIUM CHLORIDE
     Dosage: 1 DAY
     Route: 065
     Dates: start: 20150519, end: 20150519
  2. CYCLOPHOSPHAMIDE FOR INJECTION, USP [Suspect]
     Active Substance: CYCLOPHOSPHAMIDE
     Indication: DIFFUSE LARGE B-CELL LYMPHOMA
     Route: 065
     Dates: start: 20150113
  3. RITUXIMAB [Suspect]
     Active Substance: RITUXIMAB
     Route: 042
     Dates: start: 20150702
  4. DOXORUBICIN [Suspect]
     Active Substance: DOXORUBICIN
     Indication: DIFFUSE LARGE B-CELL LYMPHOMA
     Route: 065
     Dates: start: 20150113
  5. DIPHENHYDRAMINE. [Concomitant]
     Active Substance: DIPHENHYDRAMINE
     Indication: PREMEDICATION
     Dosage: 1 DAY
     Route: 065
     Dates: start: 20150319, end: 20150319
  6. DIPHENHYDRAMINE. [Concomitant]
     Active Substance: DIPHENHYDRAMINE
     Dosage: 1 DAY
     Route: 065
     Dates: start: 20150414, end: 20150414
  7. PACKED RED BLOOD CELLS [Concomitant]
     Active Substance: HUMAN RED BLOOD CELL
     Dosage: 1 DAY
     Route: 065
     Dates: start: 20150516, end: 20150516
  8. GDC-0199 [Suspect]
     Active Substance: VENETOCLAX
     Indication: DIFFUSE LARGE B-CELL LYMPHOMA
     Dosage: 200 (UNITS NOT REPORTED)
     Route: 048
     Dates: start: 20150116
  9. GDC-0199 [Suspect]
     Active Substance: VENETOCLAX
     Dosage: RESTARTED
     Route: 065
  10. VINCRISTINE [Suspect]
     Active Substance: VINCRISTINE
     Dosage: 2 (UNITS NOT REPORTED)
     Route: 065
     Dates: start: 20150519
  11. FLUTICASONE [Concomitant]
     Active Substance: FLUTICASONE\FLUTICASONE PROPIONATE
     Indication: SINUSITIS
     Route: 045
  12. TRAMADOL. [Concomitant]
     Active Substance: TRAMADOL
     Indication: PAIN
     Route: 065
     Dates: start: 20141230
  13. DOCUSATE SODIUM. [Concomitant]
     Active Substance: DOCUSATE SODIUM
     Indication: CONSTIPATION
     Route: 065
     Dates: start: 20150109
  14. ACETAMINOPHEN. [Concomitant]
     Active Substance: ACETAMINOPHEN
     Dosage: 1 DAY
     Route: 065
     Dates: start: 20150414, end: 20150414
  15. ACETAMINOPHEN. [Concomitant]
     Active Substance: ACETAMINOPHEN
     Dosage: 1 DAY
     Route: 065
     Dates: start: 20150523, end: 20150523
  16. ACETAMINOPHEN. [Concomitant]
     Active Substance: ACETAMINOPHEN
     Dosage: 1 DAY
     Route: 065
     Dates: start: 20150527, end: 20150527
  17. PALONOSETRON [Concomitant]
     Active Substance: PALONOSETRON
     Indication: PROPHYLAXIS OF NAUSEA AND VOMITING
     Dosage: 1 DAY
     Route: 065
     Dates: start: 20150319, end: 20150319
  18. PALONOSETRON [Concomitant]
     Active Substance: PALONOSETRON
     Indication: PROPHYLAXIS OF NAUSEA AND VOMITING
     Dosage: 1 DAY
     Route: 065
     Dates: start: 20150414, end: 20150414
  19. GDC-0199 [Suspect]
     Active Substance: VENETOCLAX
     Dosage: 200 (UNITS NOT REPORTED); INTERRUPTED
     Route: 065
     Dates: start: 20150422
  20. DOXORUBICIN [Suspect]
     Active Substance: DOXORUBICIN
     Dosage: 95 (UNITS NOT REPORTED)
     Route: 065
     Dates: start: 20150414
  21. DOXORUBICIN [Suspect]
     Active Substance: DOXORUBICIN
     Dosage: 70 (UNITS NOT REPORTED)
     Route: 065
     Dates: start: 20150519
  22. DEXAMETHASONE. [Concomitant]
     Active Substance: DEXAMETHASONE
     Indication: PREMEDICATION
     Dosage: 1 DAY
     Route: 065
     Dates: start: 20150319, end: 20150319
  23. PROPRANOLOL [Concomitant]
     Active Substance: PROPRANOLOL\PROPRANOLOL HYDROCHLORIDE
     Indication: CORONARY ARTERY DISEASE
     Dosage: EXTENDED RELEASE
     Route: 065
  24. DIPHENHYDRAMINE. [Concomitant]
     Active Substance: DIPHENHYDRAMINE
     Dosage: 1 DAY
     Route: 065
     Dates: start: 20150609, end: 20150609
  25. 0.9% SODIUM CHLORIDE INJECTION [Suspect]
     Active Substance: SODIUM CHLORIDE
     Indication: FLUID REPLACEMENT
     Dosage: 1 DAY
     Route: 065
     Dates: start: 20150319, end: 20150319
  26. VINCRISTINE [Suspect]
     Active Substance: VINCRISTINE
     Dosage: 2 (UNITS NOT REPORTED)
     Route: 065
     Dates: start: 20150414
  27. PREDNISONE. [Suspect]
     Active Substance: PREDNISONE
     Indication: DIFFUSE LARGE B-CELL LYMPHOMA
     Route: 065
     Dates: start: 20150113
  28. ACYCLOVIR. [Concomitant]
     Active Substance: ACYCLOVIR
     Indication: ANTIVIRAL PROPHYLAXIS
     Route: 065
     Dates: start: 20150113
  29. DEXAMETHASONE. [Concomitant]
     Active Substance: DEXAMETHASONE
     Dosage: 1 DAY
     Route: 065
     Dates: start: 20150519, end: 20150519
  30. ASPIRIN. [Concomitant]
     Active Substance: ASPIRIN
     Indication: CORONARY ARTERY DISEASE
     Route: 065
  31. SIMETHICONE (DIMETHICONE) [Concomitant]
     Active Substance: DIMETHICONE
     Indication: FLATULENCE
     Route: 065
     Dates: start: 201412
  32. ACETAMINOPHEN. [Concomitant]
     Active Substance: ACETAMINOPHEN
     Dosage: 1 DAY
     Route: 065
     Dates: start: 20150319, end: 20150319
  33. ACETAMINOPHEN. [Concomitant]
     Active Substance: ACETAMINOPHEN
     Dosage: 1 DAY
     Route: 065
     Dates: start: 20150408, end: 20150408
  34. ACETAMINOPHEN. [Concomitant]
     Active Substance: ACETAMINOPHEN
     Dosage: 1 DAY
     Route: 065
     Dates: start: 20150421, end: 20150421
  35. ACETAMINOPHEN. [Concomitant]
     Active Substance: ACETAMINOPHEN
     Dosage: 1 DAY
     Route: 065
     Dates: start: 20150418, end: 20150418
  36. FOSAPREPITANT [Concomitant]
     Active Substance: FOSAPREPITANT
     Indication: PROPHYLAXIS OF NAUSEA AND VOMITING
     Dosage: 1 DAY
     Route: 065
     Dates: start: 20150519, end: 20150519
  37. 0.9% SODIUM CHLORIDE INJECTION [Suspect]
     Active Substance: SODIUM CHLORIDE
     Dosage: 1 DAY
     Route: 065
     Dates: start: 20150414, end: 20150414
  38. DEXAMETHASONE. [Concomitant]
     Active Substance: DEXAMETHASONE
     Dosage: 1 DAY
     Route: 065
     Dates: start: 20150414, end: 20150414
  39. ESOMEPRAZOLE [Concomitant]
     Active Substance: ESOMEPRAZOLE
     Indication: GASTROOESOPHAGEAL REFLUX DISEASE
     Route: 065
  40. PROPRANOLOL [Concomitant]
     Active Substance: PROPRANOLOL\PROPRANOLOL HYDROCHLORIDE
     Indication: TREMOR
  41. SENNA [Concomitant]
     Active Substance: SENNA LEAF\SENNOSIDES\SENNOSIDES A AND B
     Indication: CONSTIPATION
     Route: 065
     Dates: start: 20141230
  42. CYCLOPHOSPHAMIDE FOR INJECTION, USP [Suspect]
     Active Substance: CYCLOPHOSPHAMIDE
     Dosage: 1400 (UNITS NOT REPORTED)
     Route: 065
     Dates: start: 20150414
  43. RITUXIMAB [Suspect]
     Active Substance: RITUXIMAB
     Route: 042
     Dates: start: 20150414
  44. PREDNISONE. [Suspect]
     Active Substance: PREDNISONE
     Dosage: 100 (UNITS NOT REPORTED)
     Route: 065
     Dates: start: 20150525
  45. METFORMIN [Concomitant]
     Active Substance: METFORMIN HYDROCHLORIDE
     Indication: TYPE 2 DIABETES MELLITUS
     Route: 065
  46. TAMSULOSIN [Concomitant]
     Active Substance: TAMSULOSIN
     Indication: BENIGN PROSTATIC HYPERPLASIA
     Route: 065
  47. LORATADINE. [Concomitant]
     Active Substance: LORATADINE
     Indication: SINUSITIS
     Route: 065
     Dates: start: 20150205
  48. ACETAMINOPHEN. [Concomitant]
     Active Substance: ACETAMINOPHEN
     Indication: PREMEDICATION
     Dosage: 1 DAY
     Route: 065
     Dates: start: 20150310, end: 20150310
  49. ACETAMINOPHEN. [Concomitant]
     Active Substance: ACETAMINOPHEN
     Dosage: 1 DAY
     Route: 065
     Dates: start: 20150502, end: 20150502
  50. ACETAMINOPHEN. [Concomitant]
     Active Substance: ACETAMINOPHEN
     Dosage: 1 DAY
     Route: 065
     Dates: start: 20150516, end: 20150516
  51. ACETAMINOPHEN. [Concomitant]
     Active Substance: ACETAMINOPHEN
     Dosage: 1 DAY
     Route: 065
     Dates: start: 20150519, end: 20150519
  52. ACETAMINOPHEN. [Concomitant]
     Active Substance: ACETAMINOPHEN
     Dosage: 1 DAY
     Route: 065
     Dates: start: 20150609, end: 20150609
  53. PACKED RED BLOOD CELLS [Concomitant]
     Active Substance: HUMAN RED BLOOD CELL
     Indication: ANAEMIA
     Dosage: 1 DAY
     Route: 065
     Dates: start: 20150310, end: 20150310
  54. PACKED RED BLOOD CELLS [Concomitant]
     Active Substance: HUMAN RED BLOOD CELL
     Dosage: 1 DAY
     Route: 065
     Dates: start: 20150408, end: 20150408
  55. PACKED RED BLOOD CELLS [Concomitant]
     Active Substance: HUMAN RED BLOOD CELL
     Dosage: 1 DAY
     Route: 065
     Dates: start: 20150418, end: 20150418
  56. PACKED RED BLOOD CELLS [Concomitant]
     Active Substance: HUMAN RED BLOOD CELL
     Dosage: 1 DAY
     Route: 065
     Dates: start: 20150523, end: 20150523
  57. PACKED RED BLOOD CELLS [Concomitant]
     Active Substance: HUMAN RED BLOOD CELL
     Dosage: 1 DAY
     Route: 065
     Dates: start: 20150530, end: 20150530
  58. GDC-0199 [Suspect]
     Active Substance: VENETOCLAX
     Route: 065
     Dates: start: 20150711
  59. VINCRISTINE [Suspect]
     Active Substance: VINCRISTINE
     Indication: DIFFUSE LARGE B-CELL LYMPHOMA
     Route: 065
     Dates: start: 20150113
  60. GUAIFENESIN. [Concomitant]
     Active Substance: GUAIFENESIN
     Indication: SINUS CONGESTION
     Route: 065
     Dates: start: 20141230
  61. FOSAPREPITANT [Concomitant]
     Active Substance: FOSAPREPITANT
     Indication: PROPHYLAXIS OF NAUSEA AND VOMITING
     Dosage: 1 DAY
     Route: 065
     Dates: start: 20150414, end: 20150414
  62. PALONOSETRON [Concomitant]
     Active Substance: PALONOSETRON
     Indication: PROPHYLAXIS OF NAUSEA AND VOMITING
     Dosage: 1 DAY
     Route: 065
     Dates: start: 20150519, end: 20150519
  63. CYCLOPHOSPHAMIDE FOR INJECTION, USP [Suspect]
     Active Substance: CYCLOPHOSPHAMIDE
     Dosage: 1100 (UNITS NOT REPORTED)
     Route: 065
     Dates: start: 20150519
  64. RITUXIMAB [Suspect]
     Active Substance: RITUXIMAB
     Indication: DIFFUSE LARGE B-CELL LYMPHOMA
     Route: 042
     Dates: start: 20150113
  65. PREDNISONE. [Suspect]
     Active Substance: PREDNISONE
     Dosage: 25 (UNITS NOT REPORTED)
     Route: 065
     Dates: start: 20150418
  66. SULFAMETHOXAZOLE/TRIMETHOPRIM [Concomitant]
     Active Substance: SULFAMETHOXAZOLE\TRIMETHOPRIM
     Indication: ANTIFUNGAL PROPHYLAXIS
     Route: 065
     Dates: start: 20150113
  67. SIMVASTATIN. [Concomitant]
     Active Substance: SIMVASTATIN
     Indication: HYPERLIPIDAEMIA
     Route: 065
  68. LACTOBACILLUS ACIDOPHILUS [Concomitant]
     Active Substance: LACTOBACILLUS ACIDOPHILUS
     Indication: PROPHYLAXIS
     Dosage: PROBIOTIC
     Route: 065
  69. WAL-SOM [Concomitant]
     Active Substance: DIPHENHYDRAMINE HYDROCHLORIDE
     Indication: INSOMNIA
     Route: 065
  70. POLYETHYLENE GLYCOL [Concomitant]
     Active Substance: POLYETHYLENE GLYCOLS
     Indication: CONSTIPATION
     Route: 065
     Dates: start: 20150109
  71. MAGNESIUM HYDROXIDE. [Concomitant]
     Active Substance: MAGNESIUM HYDROXIDE
     Indication: CONSTIPATION
     Route: 065
     Dates: start: 20150109
  72. ACETAMINOPHEN. [Concomitant]
     Active Substance: ACETAMINOPHEN
     Dosage: 1 DAY
     Route: 065
     Dates: start: 20150530, end: 20150530
  73. DIPHENHYDRAMINE. [Concomitant]
     Active Substance: DIPHENHYDRAMINE
     Dosage: 1 DAY
     Route: 065
     Dates: start: 20150519, end: 20150519
  74. FOSAPREPITANT [Concomitant]
     Active Substance: FOSAPREPITANT
     Indication: PROPHYLAXIS OF NAUSEA AND VOMITING
     Dosage: 1 DAY
     Route: 065
     Dates: start: 20150319, end: 20150319

REACTIONS (5)
  - Neutropenia [Unknown]
  - Dyspnoea [Recovering/Resolving]
  - Rhinovirus infection [Unknown]
  - Pneumonia respiratory syncytial viral [Recovered/Resolved]
  - Nasopharyngitis [Unknown]

NARRATIVE: CASE EVENT DATE: 20150422
